FAERS Safety Report 8026061-9 (Version None)
Quarter: 2012Q1

REPORT INFORMATION
  Report Type: 
  Country: None (occurrence: None)
  Receive Date: 20120105
  Receipt Date: 20110729
  Transmission Date: 20120608
  Serious: No
  Sender: FDA-Public Use
  Company Number: US-ABBOTT-11P-163-0843316-00

PATIENT
  Sex: Female
  Weight: 63.56 kg

DRUGS (3)
  1. SYNTHROID [Suspect]
     Indication: AUTOIMMUNE THYROIDITIS
     Dosage: 6 DAYS A WEEK
     Dates: start: 20101101
  2. VITAMIN D [Concomitant]
     Indication: VITAMIN D DEFICIENCY
  3. MULTI-VITAMIN [Concomitant]
     Indication: VITAMIN SUPPLEMENTATION

REACTIONS (6)
  - BRUXISM [None]
  - MUSCLE TIGHTNESS [None]
  - PAIN IN JAW [None]
  - JOINT STIFFNESS [None]
  - DYSKINESIA [None]
  - TOOTH EROSION [None]
